FAERS Safety Report 10252674 (Version 1)
Quarter: 2014Q2

REPORT INFORMATION
  Report Type: Spontaneous
  Country: US (occurrence: US)
  Receive Date: 20140623
  Receipt Date: 20140623
  Transmission Date: 20141212
  Serious: No
  Sender: FDA-Public Use
  Company Number: US-B.I. PHARMACEUTICALS,INC./RIDGEFIELD-2014-BI-26746BP

PATIENT
  Age: 69 Year
  Sex: Male

DRUGS (17)
  1. PRADAXA [Suspect]
     Indication: ATRIAL FIBRILLATION
     Dosage: 300 MG
     Route: 048
     Dates: start: 2013
  2. MIRALAX [Concomitant]
     Indication: CONSTIPATION
     Route: 048
  3. INSULIN [Concomitant]
     Indication: DIABETES MELLITUS
     Route: 058
  4. GLIPIZIDE [Concomitant]
     Indication: DIABETES MELLITUS
     Route: 048
  5. METFORMIN [Concomitant]
     Indication: DIABETES MELLITUS
     Dosage: 2000 MG
     Route: 048
  6. CALAN SR [Concomitant]
     Indication: HYPERTENSION
     Route: 048
  7. DIGOXIN [Concomitant]
     Indication: HEART RATE IRREGULAR
     Route: 048
  8. ATORVASTATIN [Concomitant]
     Indication: BLOOD CHOLESTEROL INCREASED
     Route: 048
  9. ADCIRCA [Concomitant]
     Indication: HYPERTENSION
     Route: 048
  10. IRON [Concomitant]
     Route: 048
  11. ZYRTEC [Concomitant]
     Indication: SEASONAL ALLERGY
     Route: 048
  12. FUROSEMIDE [Concomitant]
     Indication: FLUID RETENTION
     Route: 048
  13. KLORCON [Concomitant]
     Route: 048
  14. NEXIUM [Concomitant]
     Route: 048
  15. IRBESATAN [Concomitant]
     Route: 048
  16. OXBUTYNIN [Concomitant]
     Route: 048
  17. NIZATIDINE [Concomitant]
     Route: 048

REACTIONS (3)
  - Frequent bowel movements [Not Recovered/Not Resolved]
  - Flatulence [Not Recovered/Not Resolved]
  - Urinary incontinence [Not Recovered/Not Resolved]
